FAERS Safety Report 6088088-6 (Version None)
Quarter: 2009Q1

REPORT INFORMATION
  Report Type: 
  Country: None (occurrence: None)
  Receive Date: 20090218
  Receipt Date: 20090203
  Transmission Date: 20090719
  Serious: Yes (Other)
  Sender: FDA-Public Use
  Company Number: 2009BI003300

PATIENT
  Age: 62 Year
  Sex: Female

DRUGS (7)
  1. ZEVALIN [Suspect]
     Indication: NON-HODGKIN'S LYMPHOMA
     Dosage: 0.4 MCI/KG;1X;IV
     Route: 042
     Dates: start: 20030821, end: 20030821
  2. RITUXIMAB [Concomitant]
  3. SINEMET [Concomitant]
  4. SYMMETREL [Concomitant]
  5. SIFROL [Concomitant]
  6. NEWACE [Concomitant]
  7. CHEMOTHERAPY (NOS) [Concomitant]

REACTIONS (1)
  - BASAL CELL CARCINOMA [None]
